FAERS Safety Report 6411582-2 (Version None)
Quarter: 2009Q4

REPORT INFORMATION
  Report Type: 
  Country: None (occurrence: None)
  Receive Date: 20091023
  Receipt Date: 20091014
  Transmission Date: 20100525
  Serious: Yes (Hospitalization)
  Sender: FDA-Public Use
  Company Number: US-JNJFOC-20091004680

PATIENT
  Age: 28 Year
  Sex: Male

DRUGS (3)
  1. ULTRAM [Suspect]
     Indication: ARTHRALGIA
     Dosage: DOSE: 5-6
     Route: 048
  2. ACETAMINOPHEN [Suspect]
     Route: 065
  3. ACETAMINOPHEN [Suspect]
     Indication: ARTHRALGIA
     Route: 065

REACTIONS (2)
  - CONVULSION [None]
  - OVERDOSE [None]
